FAERS Safety Report 9926012 (Version 3)
Quarter: 2014Q2

REPORT INFORMATION
  Report Type: Report from Study
  Country: JP (occurrence: JP)
  Receive Date: 20140226
  Receipt Date: 20140414
  Transmission Date: 20141212
  Serious: Yes (Other)
  Sender: FDA-Public Use
  Company Number: JP-UCBSA-111869

PATIENT
  Age: 53 Year
  Sex: Female
  Weight: 47 kg

DRUGS (8)
  1. CIMZIA [Suspect]
     Indication: RHEUMATOID ARTHRITIS
     Route: 058
     Dates: start: 20130801, end: 20130829
  2. CIMZIA [Suspect]
     Indication: RHEUMATOID ARTHRITIS
     Route: 058
     Dates: start: 20130912, end: 20131226
  3. RHEUMATREX [Concomitant]
     Route: 048
     Dates: end: 20131023
  4. RHEUMATREX [Concomitant]
     Route: 048
     Dates: start: 20131024, end: 20131106
  5. RHEUMATREX [Concomitant]
     Route: 048
     Dates: start: 20131107
  6. PREDONINE [Concomitant]
     Dosage: 5 MG
     Route: 048
  7. NEXIUM [Concomitant]
     Dosage: 20 MG
     Route: 048
  8. FOLIAMIN [Concomitant]
     Dosage: 1 DF
     Route: 048

REACTIONS (1)
  - Ophthalmic herpes simplex [Recovered/Resolved]
